FAERS Safety Report 9278363 (Version 1)
Quarter: 2013Q2

REPORT INFORMATION
  Report Type: Spontaneous
  Country: US (occurrence: US)
  Receive Date: 20130508
  Receipt Date: 20130508
  Transmission Date: 20140414
  Serious: Yes (Other)
  Sender: FDA-Public Use
  Company Number: US-PFIZER INC-2013141225

PATIENT
  Age: 52 Year
  Sex: Male
  Weight: 83.9 kg

DRUGS (3)
  1. LIPITOR [Suspect]
     Indication: CARDIAC DISORDER
     Dosage: 20 MG, DAILY
     Dates: start: 20130404, end: 20130503
  2. PRAVASTATIN SODIUM [Suspect]
     Dosage: UNK
     Dates: start: 1998, end: 201304
  3. ZOLPIDEM [Concomitant]
     Indication: INSOMNIA
     Dosage: 10 MG, AS NEEDED

REACTIONS (6)
  - Atrioventricular block [Unknown]
  - Ulcer [Unknown]
  - Nasopharyngitis [Unknown]
  - Myalgia [Recovering/Resolving]
  - Muscle spasms [Recovering/Resolving]
  - Insomnia [Recovering/Resolving]
